FAERS Safety Report 6469722-5 (Version None)
Quarter: 2009Q4

REPORT INFORMATION
  Report Type: 
  Country: None (occurrence: None)
  Receive Date: 20091130
  Receipt Date: 20091119
  Transmission Date: 20100525
  Serious: Yes (Other)
  Sender: FDA-Public Use
  Company Number: 2009SP037785

PATIENT
  Age: 73 Year
  Sex: Female

DRUGS (4)
  1. DESLORATADINE [Suspect]
     Indication: HYPERSENSITIVITY
     Dosage: 1 DF QD
  2. BIPRETERAX (BI PREDONIUM) [Suspect]
     Indication: HYPERTENSION
     Dates: start: 20070101
  3. SYMBICORT [Concomitant]
  4. V [Concomitant]

REACTIONS (2)
  - DRUG INTERACTION [None]
  - SYSTOLIC HYPERTENSION [None]
